FAERS Safety Report 9092652 (Version 2)
Quarter: 2014Q2

REPORT INFORMATION
  Report Type: Spontaneous
  Country: US (occurrence: US)
  Receive Date: 20130131
  Receipt Date: 20140423
  Transmission Date: 20141212
  Serious: No
  Sender: FDA-Public Use
  Company Number: US-009507513-1211USA000352

PATIENT
  Sex: Male

DRUGS (2)
  1. DR. SCHOLLS LIQUID CORN CALLUS REMOVER [Suspect]
     Indication: PRODUCT USED FOR UNKNOWN INDICATION
     Dosage: UNK, UNKNOWN
     Route: 061
  2. DR. SCHOLLS LIQUID CORN CALLUS REMOVER [Suspect]
     Dosage: UNK
     Route: 061

REACTIONS (2)
  - Burning sensation [Unknown]
  - Product quality issue [Unknown]
